FAERS Safety Report 20655767 (Version 1)
Quarter: 2022Q1

REPORT INFORMATION
  Report Type: Spontaneous
  Country: ES (occurrence: ES)
  Receive Date: 20220330
  Receipt Date: 20220330
  Transmission Date: 20220423
  Serious: Yes (Death, Hospitalization, Other)
  Sender: FDA-Public Use
  Company Number: ES-SCIEGENP-2022SCLIT00246

PATIENT
  Age: 62 Year
  Sex: Male

DRUGS (10)
  1. NAPROXEN [Suspect]
     Active Substance: NAPROXEN
     Indication: Pain
     Route: 065
  2. PIPERACILLIN AND TAZOBACTAM [Concomitant]
     Active Substance: PIPERACILLIN SODIUM\TAZOBACTAM SODIUM
     Indication: Product used for unknown indication
     Dosage: M 3.375 G/8 HOURS INTRAVENOUS FOR  10 DAYS
     Route: 042
  3. FLUCONAZOLE [Concomitant]
     Active Substance: FLUCONAZOLE
     Indication: Product used for unknown indication
     Route: 065
  4. VANCOMYCIN [Concomitant]
     Active Substance: VANCOMYCIN
     Indication: Product used for unknown indication
     Route: 065
  5. FUROSEMIDE [Concomitant]
     Active Substance: FUROSEMIDE
     Indication: Product used for unknown indication
     Dosage: 30 MG/HOUR
     Route: 065
  6. CASPOFUNGIN [Concomitant]
     Active Substance: CASPOFUNGIN
     Indication: Product used for unknown indication
     Dosage: 13  DAYS AT 50  MG/24  HOURS
     Route: 065
  7. MEROPENEM [Concomitant]
     Active Substance: MEROPENEM
     Indication: Product used for unknown indication
     Dosage: FOR 21  DAYS AT  1 G/8 HOURS
     Route: 065
  8. TEICOPLANIN [Concomitant]
     Active Substance: TEICOPLANIN
     Indication: Product used for unknown indication
     Dosage: AT 400 MG/12 HOURS  FOR 6  DAYS
     Route: 065
  9. ertapenem and ampicillin [Concomitant]
     Indication: Product used for unknown indication
     Dosage: 1  G/24  HOURS AND 1  G/6  HOURS,
     Route: 065
  10. LINEZOLID [Concomitant]
     Active Substance: LINEZOLID
     Dosage: (600 MG/12 HOURS) WAS ALSO STARTED AT 20  DAYS
     Route: 040

REACTIONS (1)
  - Mesenteric phlebosclerosis [Fatal]
